FAERS Safety Report 20933372 (Version 1)
Quarter: 2022Q2

REPORT INFORMATION
  Report Type: Spontaneous
  Country: US (occurrence: None)
  Receive Date: 20220608
  Receipt Date: 20220608
  Transmission Date: 20220721
  Serious: Yes (Hospitalization, Other)
  Sender: FDA-Public Use
  Company Number: None

PATIENT
  Sex: Male
  Weight: 70.31 kg

DRUGS (10)
  1. RIFAMPIN SODIUM [Suspect]
     Active Substance: RIFAMPIN SODIUM
  2. ETHAMBUTOL [Suspect]
     Active Substance: ETHAMBUTOL HYDROCHLORIDE
  3. AZITHROMYCIN [Suspect]
     Active Substance: AZITHROMYCIN
  4. LEVOFLOXACIN [Suspect]
     Active Substance: LEVOFLOXACIN
  5. CALCIUM [Concomitant]
     Active Substance: CALCIUM
  6. MAGNESIUM ZINC [Concomitant]
  7. VITAMIN C [Concomitant]
     Active Substance: ASCORBIC ACID
  8. PROAIR HFA [Concomitant]
     Active Substance: ALBUTEROL SULFATE
  9. MONTELUKAST SODIUM [Concomitant]
     Active Substance: MONTELUKAST SODIUM
  10. PEPTO-BISMOL [Concomitant]
     Active Substance: BISMUTH SUBSALICYLATE

REACTIONS (14)
  - Treatment failure [None]
  - Mycobacterium avium complex infection [None]
  - Adverse reaction [None]
  - Weight decreased [None]
  - Dysphagia [None]
  - Choking [None]
  - Hypoaesthesia [None]
  - Paraesthesia [None]
  - Hypoaesthesia [None]
  - Paraesthesia [None]
  - Cough [None]
  - Dyspnoea [None]
  - Gait inability [None]
  - Injury [None]
